FAERS Safety Report 15410302 (Version 3)
Quarter: 2019Q1

REPORT INFORMATION
  Report Type: Report from Study
  Country: None (occurrence: NL)
  Receive Date: 20180921
  Receipt Date: 20190222
  Transmission Date: 20190417
  Serious: No
  Sender: FDA-Public Use
  Company Number: NL-ABBVIE-18K-114-2373473-00

PATIENT
  Sex: Female
  Weight: 76 kg

DRUGS (4)
  1. DUODOPA [Suspect]
     Active Substance: CARBIDOPA\LEVODOPA
     Indication: PARKINSON^S DISEASE
     Dosage: MD:8, CD:2.4, ED:1
     Route: 050
     Dates: start: 20180514
  2. RIVASTIGMINE. [Concomitant]
     Active Substance: RIVASTIGMINE
     Indication: PRODUCT USED FOR UNKNOWN INDICATION
  3. DUODOPA [Suspect]
     Active Substance: CARBIDOPA\LEVODOPA
     Dosage: MD: 6
     Route: 050
  4. DUODOPA [Suspect]
     Active Substance: CARBIDOPA\LEVODOPA
     Dosage: MD: 6.0 ML CD: 2.0 ML ED: 1.0 ML
     Route: 050

REACTIONS (17)
  - Stoma site pain [Recovered/Resolved]
  - Stoma site discharge [Not Recovered/Not Resolved]
  - Tremor [Not Recovered/Not Resolved]
  - Orthostatic hypotension [Recovering/Resolving]
  - Hypophagia [Not Recovered/Not Resolved]
  - Dyskinesia [Recovered/Resolved]
  - Cognitive disorder [Not Recovered/Not Resolved]
  - On and off phenomenon [Not Recovered/Not Resolved]
  - Catheter site discolouration [Not Recovered/Not Resolved]
  - Hallucination [Recovered/Resolved]
  - Hyperkinesia [Not Recovered/Not Resolved]
  - Stoma site discharge [Not Recovered/Not Resolved]
  - Stoma site erythema [Not Recovered/Not Resolved]
  - Fibroma [Not Recovered/Not Resolved]
  - Dizziness [Not Recovered/Not Resolved]
  - Hallucination [Not Recovered/Not Resolved]
  - Abnormal dreams [Not Recovered/Not Resolved]

NARRATIVE: CASE EVENT DATE: 2018
